FAERS Safety Report 16987368 (Version 1)
Quarter: 2019Q4

REPORT INFORMATION
  Report Type: Spontaneous
  Country: FR (occurrence: FR)
  Receive Date: 20191102
  Receipt Date: 20191102
  Transmission Date: 20200122
  Serious: Yes (Hospitalization)
  Sender: FDA-Public Use
  Company Number: FR-TEVA-2019-FR-1130249

PATIENT
  Age: 70 Year
  Sex: Female
  Weight: 75 kg

DRUGS (2)
  1. CEFTRIAXONE BASE [Suspect]
     Active Substance: CEFTRIAXONE
     Indication: URINARY TRACT INFECTION
     Dosage: 1 GRAM 1 DAYS
     Route: 042
     Dates: start: 20190813, end: 20190818
  2. FURADANTINE [Suspect]
     Active Substance: NITROFURANTOIN
     Indication: PYELONEPHRITIS
     Dosage: 6 DOSAGE FORMS 1 DAYS
     Route: 048
     Dates: start: 20190819, end: 20190821

REACTIONS (3)
  - Pruritus [Recovered/Resolved]
  - Headache [Recovered/Resolved]
  - Rash papular [Recovered/Resolved]

NARRATIVE: CASE EVENT DATE: 20190820
